FAERS Safety Report 25377871 (Version 1)
Quarter: 2025Q2

REPORT INFORMATION
  Report Type: Spontaneous
  Country: IL (occurrence: IL)
  Receive Date: 20250530
  Receipt Date: 20250530
  Transmission Date: 20250716
  Serious: Yes (Other)
  Sender: QUAGEN PHARMACEUTICALS
  Company Number: IL-QUAGEN-2025QUALIT00357

PATIENT
  Age: 72 Year
  Sex: Female

DRUGS (6)
  1. LEVETIRACETAM [Suspect]
     Active Substance: LEVETIRACETAM
     Indication: Simple partial seizures
     Route: 065
  2. LEVETIRACETAM [Suspect]
     Active Substance: LEVETIRACETAM
     Indication: Epilepsia partialis continua
  3. LACOSAMIDE [Concomitant]
     Active Substance: LACOSAMIDE
     Route: 065
  4. LACOSAMIDE [Concomitant]
     Active Substance: LACOSAMIDE
     Indication: Epilepsia partialis continua
  5. CLOBAZAM [Concomitant]
     Active Substance: CLOBAZAM
     Route: 065
  6. CLOBAZAM [Concomitant]
     Active Substance: CLOBAZAM
     Indication: Epilepsia partialis continua

REACTIONS (2)
  - Seizure [Recovered/Resolved]
  - Cognitive disorder [Unknown]
